FAERS Safety Report 13941204 (Version 2)
Quarter: 2017Q3

REPORT INFORMATION
  Report Type: Spontaneous
  Country: JP (occurrence: JP)
  Receive Date: 20170906
  Receipt Date: 20170919
  Transmission Date: 20171127
  Serious: Yes (Other)
  Sender: FDA-Public Use
  Company Number: JP-JNJFOC-20170903432

PATIENT
  Age: 67 Year
  Sex: Female

DRUGS (5)
  1. DIART [Concomitant]
     Active Substance: AZOSEMIDE
  2. XARELTO [Suspect]
     Active Substance: RIVAROXABAN
     Indication: CEREBROVASCULAR ACCIDENT PROPHYLAXIS
     Route: 048
  3. XARELTO [Suspect]
     Active Substance: RIVAROXABAN
     Indication: ATRIAL FIBRILLATION
     Route: 048
  4. RENIVACE [Concomitant]
     Active Substance: ENALAPRIL
  5. ADALAT [Concomitant]
     Active Substance: NIFEDIPINE

REACTIONS (2)
  - Circumstance or information capable of leading to medication error [Unknown]
  - Deep vein thrombosis [Unknown]

NARRATIVE: CASE EVENT DATE: 20170829
